FAERS Safety Report 8546450-3 (Version None)
Quarter: 2012Q3

REPORT INFORMATION
  Report Type: 
  Country: None (occurrence: None)
  Receive Date: 20120727
  Receipt Date: 20120127
  Transmission Date: 20120928
  Serious: No
  Sender: FDA-Public Use
  Company Number: US-ASTRAZENECA-2012SE02006

PATIENT
  Age: 53 Year
  Sex: Female
  Weight: 72.1 kg

DRUGS (3)
  1. SEROQUEL [Suspect]
     Dosage: CUTTING 100 MG TABLET INTO HALF
     Route: 048
  2. ANTIDEPRESSANT MEDICATION [Concomitant]
  3. SEROQUEL [Suspect]
     Route: 048

REACTIONS (5)
  - SOMNOLENCE [None]
  - SEDATION [None]
  - WRONG TECHNIQUE IN DRUG USAGE PROCESS [None]
  - DRY MOUTH [None]
  - WRONG DRUG ADMINISTERED [None]
